FAERS Safety Report 18593516 (Version 1)
Quarter: 2020Q4

REPORT INFORMATION
  Report Type: Spontaneous
  Country: CN (occurrence: CN)
  Receive Date: 20201208
  Receipt Date: 20201208
  Transmission Date: 20210114
  Serious: Yes (Other)
  Sender: FDA-Public Use
  Company Number: CN-BAXTER-2020BAX024660

PATIENT
  Age: 23 Year
  Sex: Male

DRUGS (15)
  1. DAUNORUBICIN [Suspect]
     Active Substance: DAUNORUBICIN
     Indication: ACUTE LEUKAEMIA
     Dosage: VDCP CHEMOTHERAPY, DAUNORUBICIN 60 MG + 40ML GS, 1ST COURSE
     Route: 042
     Dates: start: 20200905, end: 20200907
  2. IDARUBICIN [Suspect]
     Active Substance: IDARUBICIN
     Dosage: CLADRIBINE + IA REGIMEN INDUCTION CHEMOTHERAPY
     Route: 042
     Dates: start: 20201106
  3. CLADRIBINE. [Suspect]
     Active Substance: CLADRIBINE
     Indication: ACUTE LEUKAEMIA
     Dosage: CLADRIBINE + IA REGIMEN INDUCTION CHEMOTHERAPY
     Route: 065
     Dates: start: 20201106
  4. ENDOXAN [Suspect]
     Active Substance: CYCLOPHOSPHAMIDE
     Indication: ACUTE LEUKAEMIA
     Dosage: VDCP CHEMOTHERAPY, 1ST COURSE
     Route: 041
     Dates: start: 20200905, end: 20200905
  5. 0.9% SODIUM CHLORIDE INJECTION [Suspect]
     Active Substance: SODIUM CHLORIDE
     Dosage: IAE CHEMOTHERAPY, ETOPOSIDE 100 MG + 500 ML NS, 1ST COURSE
     Route: 065
     Dates: start: 20200927, end: 20200929
  6. ETOPOSIDE. [Suspect]
     Active Substance: ETOPOSIDE
     Indication: ACUTE LEUKAEMIA
     Dosage: IAE CHEMOTHERAPY, ETOPOSIDE 100 MG + 500 ML NS, 1ST COURSE
     Route: 065
     Dates: start: 20200927, end: 20200929
  7. IDARUBICIN [Suspect]
     Active Substance: IDARUBICIN
     Indication: ACUTE LEUKAEMIA
     Dosage: IAE CHEMOTHERAPY, IDARUBICIN 10 MG + 40 ML GS, 1ST COURSE
     Route: 042
     Dates: start: 20200927, end: 20200929
  8. 5% GLUCOSE  INJECTION [Suspect]
     Active Substance: DEXTROSE
     Indication: MEDICATION DILUTION
     Dosage: VDCP CHEMOTHERAPY, DAUNORUBICIN 60 MG + 40ML GS, 1ST COURSE
     Route: 042
     Dates: start: 20200905, end: 20200907
  9. VINCRISTINE [Suspect]
     Active Substance: VINCRISTINE
     Indication: ACUTE LEUKAEMIA
     Dosage: VDCP CHEMOTHERAPY, VINCRISTINE 2G + 40ML NS, 1ST COURSE
     Route: 065
     Dates: start: 20200905
  10. 0.9% SODIUM CHLORIDE INJECTION [Suspect]
     Active Substance: SODIUM CHLORIDE
     Indication: MEDICATION DILUTION
     Dosage: VDCP CHEMOTHERAPY, VINCRISTINE 2G + 40ML NS, 1ST COURSE
     Route: 065
     Dates: start: 20200905
  11. CYTARABINE. [Suspect]
     Active Substance: CYTARABINE
     Dosage: CLADRIBINE + IA REGIMEN INDUCTION CHEMOTHERAPY
     Route: 065
     Dates: start: 20201106
  12. CYTARABINE. [Suspect]
     Active Substance: CYTARABINE
     Indication: ACUTE LEUKAEMIA
     Dosage: IAE CHEMOTHERAPY, CYTARABINE 100 NS, 1ST COURSE
     Route: 065
     Dates: start: 20200927, end: 20200929
  13. PREDNISONE. [Suspect]
     Active Substance: PREDNISONE
     Indication: ACUTE LEUKAEMIA
     Dosage: VDCP CHEMOTHERAPY, 1ST COURSE
     Route: 065
     Dates: start: 20200905
  14. 0.9% SODIUM CHLORIDE INJECTION [Suspect]
     Active Substance: SODIUM CHLORIDE
     Dosage: IAE CHEMOTHERAPY, CYTARABINE 100 +NS,
     Route: 065
     Dates: start: 20200927, end: 20200929
  15. 5% GLUCOSE  INJECTION [Suspect]
     Active Substance: DEXTROSE
     Dosage: IAE CHEMOTHERAPY, IDARUBICIN 10 MG + 40 ML GS, 1ST COURSE
     Route: 042
     Dates: start: 20200927, end: 20200929

REACTIONS (2)
  - Myelosuppression [Unknown]
  - Cardiotoxicity [Unknown]

NARRATIVE: CASE EVENT DATE: 20201026
